FAERS Safety Report 6912213-5 (Version None)
Quarter: 2010Q3

REPORT INFORMATION
  Report Type: 
  Country: None (occurrence: None)
  Receive Date: 20100806
  Receipt Date: 20080418
  Transmission Date: 20110219
  Serious: No
  Sender: FDA-Public Use
  Company Number: US-PFIZER INC-2008012856

PATIENT
  Age: 51 Year
  Sex: Male

DRUGS (2)
  1. DILANTIN [Suspect]
  2. IBUPROFEN [Interacting]

REACTIONS (2)
  - DRUG INEFFECTIVE [None]
  - DRUG INTERACTION [None]
